FAERS Safety Report 16336541 (Version 2)
Quarter: 2019Q2

REPORT INFORMATION
  Report Type: Spontaneous
  Country: GB (occurrence: GB)
  Receive Date: 20190521
  Receipt Date: 20190521
  Transmission Date: 20190711
  Serious: Yes (Other)
  Sender: FDA-Public Use
  Company Number: PHHY2019GB104419

PATIENT
  Age: 61 Year
  Sex: Male

DRUGS (3)
  1. TESTOSTERONE. [Concomitant]
     Active Substance: TESTOSTERONE
     Indication: HORMONE REPLACEMENT THERAPY
     Route: 065
  2. THYROXIN [Concomitant]
     Active Substance: LEVOTHYROXINE
     Indication: HORMONE REPLACEMENT THERAPY
     Route: 065
  3. PREDNISOLONE. [Suspect]
     Active Substance: PREDNISOLONE
     Indication: STEROID THERAPY
     Dosage: 60 MG, QD
     Route: 065

REACTIONS (1)
  - Steroid diabetes [Unknown]
